FAERS Safety Report 18080993 (Version 2)
Quarter: 2020Q4

REPORT INFORMATION
  Report Type: Spontaneous
  Country: JP (occurrence: JP)
  Receive Date: 20200728
  Receipt Date: 20201001
  Transmission Date: 20210113
  Serious: Yes (Death, Hospitalization, Other)
  Sender: FDA-Public Use
  Company Number: JP-DSJP-DSJ-2020-120901

PATIENT
  Age: 76 Year
  Sex: Male
  Weight: 60 kg

DRUGS (10)
  1. AMBROXOL [Concomitant]
     Active Substance: AMBROXOL
     Dosage: 15 MG, TID AFTER EACH MEAL
     Route: 065
     Dates: start: 20200517
  2. FUROSEMIDE. [Concomitant]
     Active Substance: FUROSEMIDE
     Dosage: 20 MG, BID AFTER BREAKFAST AND LUNCH
     Route: 065
     Dates: start: 20200501
  3. TRICHLORMETHIAZIDE [Concomitant]
     Active Substance: TRICHLORMETHIAZIDE
     Dosage: 2 MG, QD AFTER BREAKFAST
     Route: 065
  4. BERAPROST SODIUM [Concomitant]
     Active Substance: BERAPROST SODIUM
     Dosage: 40 UG, BID AFTER BREAKFAST AND DINNER
     Route: 065
  5. LATANOPROST. [Concomitant]
     Active Substance: LATANOPROST
     Dosage: UNK, QD LEFT EYE
     Route: 065
  6. AMLODIPINE                         /00972402/ [Concomitant]
     Active Substance: AMLODIPINE BESYLATE
     Dosage: 5 MG, QD AFTER BREAKFAST
     Route: 065
     Dates: start: 20200521
  7. FLAVERIC [Concomitant]
     Active Substance: BENPROPERINE PHOSPHATE
     Dosage: 20 MG, TID AFTER EACH MEAL
     Route: 065
     Dates: start: 20200517
  8. LIXIANA OD TABLETS [Suspect]
     Active Substance: EDOXABAN TOSYLATE
     Indication: PULMONARY ARTERY THROMBOSIS
     Dosage: 30 MG, QD AFTER BREAKFAST
     Route: 048
     Dates: start: 20191231, end: 20200430
  9. ALLOPURINOL. [Concomitant]
     Active Substance: ALLOPURINOL
     Dosage: 100 MG, QD AFTER BREAKFAST
     Route: 065
  10. TELMISARTAN. [Concomitant]
     Active Substance: TELMISARTAN
     Dosage: 40 MG, QD AFTER BREAKFAST
     Route: 065

REACTIONS (10)
  - Pulmonary embolism [Recovering/Resolving]
  - Pericarditis [Unknown]
  - Thyroid neoplasm [Unknown]
  - Cytology abnormal [Unknown]
  - Metastases to lung [Unknown]
  - Metastases to heart [Unknown]
  - Hypothyroidism [Unknown]
  - Pericardial haemorrhage [Recovered/Resolved]
  - Cardiac failure congestive [Unknown]
  - Pneumonia [Unknown]

NARRATIVE: CASE EVENT DATE: 20200510
